FAERS Safety Report 6801817-6 (Version None)
Quarter: 2010Q2

REPORT INFORMATION
  Report Type: 
  Country: None (occurrence: None)
  Receive Date: 20100629
  Receipt Date: 20100618
  Transmission Date: 20101027
  Serious: Yes (Other)
  Sender: FDA-Public Use
  Company Number: US-WYE-H15772710

PATIENT
  Age: 84 Year
  Sex: Male
  Weight: 59 kg

DRUGS (5)
  1. TYGACIL [Suspect]
     Dosage: 100MG LOADING DOSE THEN 50MG EVERY 12 HOURS
     Route: 042
     Dates: start: 20100617
  2. LEVAQUIN [Interacting]
     Route: 042
     Dates: start: 20100617
  3. WARFARIN [Interacting]
     Indication: ATRIAL FIBRILLATION
     Route: 048
     Dates: start: 20100617, end: 20100618
  4. WARFARIN [Interacting]
     Indication: ATRIAL FLUTTER
     Route: 048
     Dates: start: 20100616, end: 20100616
  5. WARFARIN [Interacting]
     Route: 048
     Dates: start: 20100615, end: 20100615

REACTIONS (3)
  - DRUG INTERACTION [None]
  - INTERNATIONAL NORMALISED RATIO INCREASED [None]
  - PULMONARY EMBOLISM [None]
